FAERS Safety Report 11914654 (Version 1)
Quarter: 2016Q1

REPORT INFORMATION
  Report Type: Spontaneous
  Country: US (occurrence: US)
  Receive Date: 20160113
  Receipt Date: 20160113
  Transmission Date: 20160526
  Serious: Yes (Hospitalization, Other)
  Sender: FDA-Public Use
  Company Number: US-ABBVIE-16P-163-1533021-00

PATIENT
  Sex: Female
  Weight: 61 kg

DRUGS (10)
  1. LYRICA [Interacting]
     Active Substance: PREGABALIN
     Indication: PRODUCT USED FOR UNKNOWN INDICATION
     Dosage: 25MG-75MG ONCE OR TWICE A DAY
     Route: 048
     Dates: start: 2006
  2. SEROQUEL [Suspect]
     Active Substance: QUETIAPINE FUMARATE
     Indication: PRODUCT USED FOR UNKNOWN INDICATION
     Route: 065
  3. NEURONTIN [Interacting]
     Active Substance: GABAPENTIN
     Route: 065
  4. VICODIN [Interacting]
     Active Substance: ACETAMINOPHEN\HYDROCODONE BITARTRATE
     Indication: PAIN
     Dosage: 1-2 HALVES ONCE OR TWICE A DAY
     Route: 048
     Dates: start: 2006
  5. LYRICA [Interacting]
     Active Substance: PREGABALIN
     Dosage: ONCE OR TWICE A DAY
     Route: 048
  6. ATORVASTATIN [Concomitant]
     Active Substance: ATORVASTATIN
     Indication: PRODUCT USED FOR UNKNOWN INDICATION
     Route: 065
  7. NEURONTIN [Interacting]
     Active Substance: GABAPENTIN
     Dosage: 200-400 MG AT HS
     Route: 065
  8. TYLENOL WITH CODEINE [Interacting]
     Active Substance: ACETAMINOPHEN\CODEINE PHOSPHATE
     Indication: PAIN
     Route: 065
  9. AMBIEN [Concomitant]
     Active Substance: ZOLPIDEM TARTRATE
     Indication: PRODUCT USED FOR UNKNOWN INDICATION
     Dosage: ONCE AT NIGHT PRN
     Route: 065
  10. NEURONTIN [Interacting]
     Active Substance: GABAPENTIN
     Indication: PRODUCT USED FOR UNKNOWN INDICATION
     Route: 065
     Dates: start: 2006

REACTIONS (13)
  - Fall [Unknown]
  - Joint injury [Unknown]
  - Musculoskeletal stiffness [Unknown]
  - Corneal abrasion [Unknown]
  - Drug interaction [Recovered/Resolved]
  - Blood cholesterol increased [Unknown]
  - Mania [Recovered/Resolved with Sequelae]
  - Hypothyroidism [Unknown]
  - Mania [Recovered/Resolved]
  - Paranoia [Unknown]
  - Cerebrovascular accident [Unknown]
  - Feeling abnormal [Unknown]
  - Dry eye [Unknown]

NARRATIVE: CASE EVENT DATE: 2009
